FAERS Safety Report 10174428 (Version 1)
Quarter: 2014Q2

REPORT INFORMATION
  Report Type: Spontaneous
  Country: US (occurrence: None)
  Receive Date: 20140514
  Receipt Date: 20140514
  Transmission Date: 20141212
  Serious: No
  Sender: FDA-Public Use
  Company Number: None

PATIENT
  Sex: Male
  Weight: 56.09 kg

DRUGS (3)
  1. BENDAMUSTINE HYDROCHLORIDE [Suspect]
     Dates: start: 20140410, end: 20140411
  2. BORTEZOMIB [Suspect]
     Dates: start: 20140410, end: 20140417
  3. RITUXIMAB(MOAB C2B8 ANTI CD20, CHIMERIC) [Suspect]
     Dates: start: 20140410, end: 20140410

REACTIONS (5)
  - Pain [None]
  - Pyrexia [None]
  - Movement disorder [None]
  - Pain in extremity [None]
  - Leukocytosis [None]
